FAERS Safety Report 6864138-1 (Version None)
Quarter: 2010Q3

REPORT INFORMATION
  Report Type: 
  Country: None (occurrence: None)
  Receive Date: 20100721
  Receipt Date: 20080320
  Transmission Date: 20110219
  Serious: No
  Sender: FDA-Public Use
  Company Number: US-PFIZER INC-2008026810

PATIENT
  Sex: Female

DRUGS (4)
  1. CHANTIX [Suspect]
     Indication: SMOKING CESSATION THERAPY
     Dates: start: 20080312
  2. HERBAL PREPARATION [Concomitant]
     Indication: HOT FLUSH
  3. HYDROCODONE [Concomitant]
  4. VALIUM [Concomitant]

REACTIONS (2)
  - DIZZINESS [None]
  - NAUSEA [None]
